FAERS Safety Report 12528499 (Version 1)
Quarter: 2016Q3

REPORT INFORMATION
  Report Type: Spontaneous
  Country: US (occurrence: US)
  Receive Date: 20160705
  Receipt Date: 20160705
  Transmission Date: 20161109
  Serious: Yes (Other)
  Sender: FDA-Public Use
  Company Number: US-ABBVIE-16P-163-1667641-00

PATIENT
  Sex: Female

DRUGS (8)
  1. SYNTHROID [Suspect]
     Active Substance: LEVOTHYROXINE SODIUM
     Dosage: ONE TABLET 3 DAYS A WEEK AND 75 MCG  TABLETS 4 DAYS A WEEK
     Route: 048
     Dates: start: 20160613, end: 20160627
  2. SYNTHROID [Suspect]
     Active Substance: LEVOTHYROXINE SODIUM
     Indication: HYPOTHYROIDISM
     Dosage: ONE TABLET FOR 6 DAYS AND 1/2 TABLET ONE DAY
     Route: 048
     Dates: end: 201511
  3. SYNTHROID [Suspect]
     Active Substance: LEVOTHYROXINE SODIUM
     Dosage: ONE  TABLET 5 DAYS A WEEK AND 75MCG TABLET 2 DAYS A WEEK K
     Route: 048
     Dates: start: 20160627
  4. SYNTHROID [Suspect]
     Active Substance: LEVOTHYROXINE SODIUM
     Route: 048
     Dates: start: 201511, end: 20160323
  5. SYNTHROID [Suspect]
     Active Substance: LEVOTHYROXINE SODIUM
     Indication: HYPOTHYROIDISM
     Route: 048
     Dates: start: 20160519, end: 20160613
  6. SYNTHROID [Suspect]
     Active Substance: LEVOTHYROXINE SODIUM
     Dosage: ONE TABLET FOR 5 DAYS AND 1/2 TABLET FOR 2 DAYS
     Route: 048
     Dates: start: 20160323, end: 20160519
  7. SYNTHROID [Suspect]
     Active Substance: LEVOTHYROXINE SODIUM
     Indication: HYPOTHYROIDISM
     Dosage: 1 TABLET 3 DAYS A WEEK AND 50MCG TABLET 4 DAYS A WEEK
     Route: 048
     Dates: start: 20160613, end: 20160627
  8. SYNTHROID [Suspect]
     Active Substance: LEVOTHYROXINE SODIUM
     Dosage: 75MCG TABLET 2 DAYS A WEEK AND 50MCG TABLET 5 DAYS A WEEK
     Route: 048
     Dates: start: 20160627

REACTIONS (9)
  - Feeling abnormal [Recovering/Resolving]
  - Fatigue [Recovered/Resolved]
  - Balance disorder [Recovering/Resolving]
  - Hodgkin^s disease [Recovered/Resolved]
  - Tremor [Recovering/Resolving]
  - Red blood cell sedimentation rate increased [Recovered/Resolved]
  - Injection site infection [Recovered/Resolved]
  - Blood thyroid stimulating hormone abnormal [Not Recovered/Not Resolved]
  - C-reactive protein increased [Recovered/Resolved]

NARRATIVE: CASE EVENT DATE: 2007
